FAERS Safety Report 13565377 (Version 2)
Quarter: 2019Q1

REPORT INFORMATION
  Report Type: Report from Study
  Country: US (occurrence: US)
  Receive Date: 20170519
  Receipt Date: 20190207
  Transmission Date: 20190417
  Serious: Yes (Other)
  Sender: FDA-Public Use
  Company Number: US-JAZZ-2017-US-005619

PATIENT
  Age: 54 Year
  Sex: Female

DRUGS (14)
  1. CRESTOR [Concomitant]
     Active Substance: ROSUVASTATIN CALCIUM
  2. ZOLOFT [Concomitant]
     Active Substance: SERTRALINE HYDROCHLORIDE
  3. XYREM [Suspect]
     Active Substance: SODIUM OXYBATE
     Dosage: 4.5 G, BID
     Route: 048
     Dates: start: 2009
  4. XYREM [Suspect]
     Active Substance: SODIUM OXYBATE
     Dosage: 3.75G, BID
     Route: 048
     Dates: start: 2008, end: 2009
  5. LISINOPRIL. [Concomitant]
     Active Substance: LISINOPRIL
  6. PROVIGIL [Concomitant]
     Active Substance: MODAFINIL
  7. CILOSTAZOL. [Concomitant]
     Active Substance: CILOSTAZOL
  8. XYREM [Suspect]
     Active Substance: SODIUM OXYBATE
     Dosage: 4.5G, BID
     Route: 048
     Dates: start: 200904
  9. XYREM [Suspect]
     Active Substance: SODIUM OXYBATE
     Dosage: 3G, BID
     Route: 048
     Dates: start: 200809, end: 2008
  10. NAPROXEN. [Concomitant]
     Active Substance: NAPROXEN
  11. OMEPRAZOLE. [Concomitant]
     Active Substance: OMEPRAZOLE
  12. XYREM [Suspect]
     Active Substance: SODIUM OXYBATE
     Indication: NARCOLEPSY
     Dosage: 3 G, BID
     Route: 048
     Dates: start: 200809, end: 200810
  13. XYREM [Suspect]
     Active Substance: SODIUM OXYBATE
     Dosage: 3.75 G, BID
     Route: 048
     Dates: start: 200810, end: 2009
  14. LORATADINE. [Concomitant]
     Active Substance: LORATADINE

REACTIONS (6)
  - Nasopharyngitis [Recovered/Resolved]
  - Sinusitis [Unknown]
  - Enuresis [Not Recovered/Not Resolved]
  - Lung infection [Unknown]
  - Tooth extraction [Recovered/Resolved]
  - Fungal infection [Unknown]

NARRATIVE: CASE EVENT DATE: 201605
